FAERS Safety Report 6594193-8 (Version None)
Quarter: 2010Q1

REPORT INFORMATION
  Report Type: 
  Country: None (occurrence: None)
  Receive Date: 20100222
  Receipt Date: 20100217
  Transmission Date: 20100710
  Serious: Yes (Death, Hospitalization)
  Sender: FDA-Public Use
  Company Number: JP-BAYER-201010799BYL

PATIENT
  Age: 54 Year
  Sex: Male

DRUGS (2)
  1. FLUDARA [Suspect]
     Indication: FOLLICLE CENTRE LYMPHOMA, FOLLICULAR GRADE I, II, III STAGE III
     Dosage: UNIT DOSE: 10 MG
     Route: 048
     Dates: start: 20090417, end: 20090421
  2. BAKTAR [Concomitant]
     Indication: ANTIFUNGAL PROPHYLAXIS
     Route: 048
     Dates: start: 20090417

REACTIONS (2)
  - PARANEOPLASTIC PEMPHIGUS [None]
  - PNEUMONIA [None]
